FAERS Safety Report 12503563 (Version 1)
Quarter: 2016Q2

REPORT INFORMATION
  Report Type: Spontaneous
  Country: US (occurrence: US)
  Receive Date: 20160628
  Receipt Date: 20160628
  Transmission Date: 20160815
  Serious: No
  Sender: FDA-Public Use
  Company Number: US-ASTRAZENECA-2016SE50773

PATIENT
  Age: 814 Month
  Sex: Female
  Weight: 61.7 kg

DRUGS (4)
  1. RHINOCORT AQUA [Suspect]
     Active Substance: BUDESONIDE
     Indication: SEASONAL ALLERGY
     Route: 045
  2. RHINOCORT [Suspect]
     Active Substance: BUDESONIDE
     Indication: HYPERSENSITIVITY
     Route: 045
     Dates: start: 201604
  3. ALIEVE [Concomitant]
     Indication: ARTHRITIS
     Route: 048
     Dates: start: 2012
  4. HYDROCHLOROTHIAZIDE. [Concomitant]
     Active Substance: HYDROCHLOROTHIAZIDE
     Indication: HYPERTENSION
     Route: 048
     Dates: start: 201402

REACTIONS (6)
  - Paranasal sinus discomfort [Unknown]
  - Product use issue [Unknown]
  - Sneezing [Recovered/Resolved]
  - Off label use [Unknown]
  - Hypertension [Unknown]
  - Intentional product misuse [Unknown]

NARRATIVE: CASE EVENT DATE: 201402
